FAERS Safety Report 6628746-5 (Version None)
Quarter: 2010Q1

REPORT INFORMATION
  Report Type: 
  Country: None (occurrence: None)
  Receive Date: 20100311
  Receipt Date: 20100305
  Transmission Date: 20100710
  Serious: Yes (Death)
  Sender: FDA-Public Use
  Company Number: TR-ELI_LILLY_AND_COMPANY-TR201003001647

PATIENT
  Sex: Male

DRUGS (3)
  1. HUMULIN 70/30 [Suspect]
     Indication: DIABETES MELLITUS
     Dosage: 30 U, EACH MORNING
     Route: 058
     Dates: start: 19991130, end: 20091130
  2. HUMULIN 70/30 [Suspect]
     Dosage: 20 U, EACH EVENING
     Route: 058
     Dates: start: 19991130, end: 20091130
  3. PENTOXIFYLLINE [Concomitant]
     Dosage: UNK, 2/D
     Route: 065

REACTIONS (1)
  - MYOCARDIAL INFARCTION [None]
